FAERS Safety Report 6623930-9 (Version None)
Quarter: 2010Q1

REPORT INFORMATION
  Report Type: 
  Country: None (occurrence: None)
  Receive Date: 20100305
  Receipt Date: 20100225
  Transmission Date: 20100710
  Serious: Yes (Hospitalization)
  Sender: FDA-Public Use
  Company Number: CAP10000120

PATIENT
  Age: 86 Year
  Sex: Male

DRUGS (1)
  1. ASACOL [Suspect]
     Dosage: 800 MG THREE TIIMES A DAY, ORAL
     Route: 048

REACTIONS (1)
  - HIP ARTHROPLASTY [None]
